FAERS Safety Report 24958751 (Version 1)
Quarter: 2025Q1

REPORT INFORMATION
  Report Type: Spontaneous
  Country: US (occurrence: US)
  Receive Date: 20250212
  Receipt Date: 20250212
  Transmission Date: 20250408
  Serious: Yes (Hospitalization, Other)
  Sender: SANOFI AVENTIS
  Company Number: US-SA-2025SA040048

PATIENT
  Sex: Female

DRUGS (2)
  1. ENOXAPARIN SODIUM [Suspect]
     Active Substance: ENOXAPARIN SODIUM
     Indication: Product used for unknown indication
     Route: 065
  2. JAKAFI [Suspect]
     Active Substance: RUXOLITINIB
     Indication: Diffuse large B-cell lymphoma
     Dosage: 10 MG, BID
     Route: 048

REACTIONS (2)
  - Sepsis [Unknown]
  - Muscle haemorrhage [Unknown]

NARRATIVE: CASE EVENT DATE: 20241001
